FAERS Safety Report 11144695 (Version 2)
Quarter: 2018Q1

REPORT INFORMATION
  Report Type: Spontaneous
  Country: US (occurrence: US)
  Receive Date: 20150528
  Receipt Date: 20180324
  Transmission Date: 20180508
  Serious: No
  Sender: FDA-Public Use
  Company Number: US-CIPLA LTD.-2015US04042

PATIENT

DRUGS (2)
  1. DARUNAVIR [Suspect]
     Active Substance: DARUNAVIR
     Indication: HIV INFECTION
     Dosage: UNK
     Route: 048
  2. RITONAVIR. [Suspect]
     Active Substance: RITONAVIR
     Indication: HIV INFECTION
     Dosage: 100 MG, BID
     Route: 048

REACTIONS (2)
  - Treatment noncompliance [Unknown]
  - Maternal exposure during pregnancy [Unknown]
